FAERS Safety Report 7717971-8 (Version None)
Quarter: 2011Q3

REPORT INFORMATION
  Report Type: 
  Country: None (occurrence: None)
  Receive Date: 20110830
  Receipt Date: 20110823
  Transmission Date: 20111222
  Serious: Yes (Other)
  Sender: FDA-Public Use
  Company Number: US-JNJFOC-20110812149

PATIENT
  Sex: Female
  Weight: 51.71 kg

DRUGS (2)
  1. REMICADE [Suspect]
     Dosage: 5 INFUSIONS PRIOR TO BASELINE
     Route: 042
  2. REMICADE [Suspect]
     Indication: CROHN'S DISEASE
     Dosage: 61 INFUSIONS
     Route: 042
     Dates: start: 20020104, end: 20101210

REACTIONS (2)
  - SKIN CANCER [None]
  - NEPHROLITHIASIS [None]
